FAERS Safety Report 11906936 (Version 3)
Quarter: 2016Q1

REPORT INFORMATION
  Report Type: Spontaneous
  Country: IT (occurrence: IT)
  Receive Date: 20160111
  Receipt Date: 20160217
  Transmission Date: 20160526
  Serious: Yes (Other)
  Sender: FDA-Public Use
  Company Number: IT-JNJFOC-20160105165

PATIENT
  Age: 60 Year
  Sex: Male
  Weight: 60 kg

DRUGS (1)
  1. HALDOL [Suspect]
     Active Substance: HALOPERIDOL
     Indication: PRODUCT USED FOR UNKNOWN INDICATION
     Route: 048
     Dates: start: 20160106, end: 20160106

REACTIONS (6)
  - Stomatitis [Unknown]
  - Drug abuse [Unknown]
  - Self injurious behaviour [Unknown]
  - Conduction disorder [Unknown]
  - Intentional overdose [Unknown]
  - Dry mouth [Unknown]

NARRATIVE: CASE EVENT DATE: 20160106
